FAERS Safety Report 7981224-3 (Version None)
Quarter: 2011Q4

REPORT INFORMATION
  Report Type: 
  Country: None (occurrence: None)
  Receive Date: 20111215
  Receipt Date: 20111209
  Transmission Date: 20120403
  Serious: Yes (Disabling, Other)
  Sender: FDA-Public Use
  Company Number: US-BAYER-200916382NA

PATIENT
  Age: 45 Year
  Sex: Female

DRUGS (2)
  1. BETASERON [Suspect]
     Indication: MULTIPLE SCLEROSIS
     Dosage: 6 MIU, QOD
     Route: 058
     Dates: start: 20090217, end: 20110504
  2. BETASERON [Suspect]
     Dosage: 8 MIU, QOD
     Route: 058
     Dates: start: 20110510

REACTIONS (9)
  - ABASIA [None]
  - ASTHENIA [None]
  - PAIN [None]
  - ARTHRALGIA [None]
  - BENIGN LUNG NEOPLASM [None]
  - HAEMATOCHEZIA [None]
  - PULMONARY SARCOIDOSIS [None]
  - BACK PAIN [None]
  - PNEUMONITIS [None]
